FAERS Safety Report 8218369-9 (Version None)
Quarter: 2012Q1

REPORT INFORMATION
  Report Type: 
  Country: None (occurrence: None)
  Receive Date: 20120319
  Receipt Date: 20120312
  Transmission Date: 20120608
  Serious: Yes (Other)
  Sender: FDA-Public Use
  Company Number: US-GLAXOSMITHKLINE-A0965175A

PATIENT
  Age: 77 Year
  Sex: Male

DRUGS (4)
  1. SOTALOL HCL [Concomitant]
  2. VENTOLIN HFA [Suspect]
     Indication: ASTHMA
     Dosage: 1SPR AS REQUIRED
     Route: 055
     Dates: start: 20100601
  3. ADVAIR DISKUS 100/50 [Concomitant]
  4. PRADAXA [Concomitant]

REACTIONS (3)
  - PRODUCT QUALITY ISSUE [None]
  - ASTHMA [None]
  - DRUG INEFFECTIVE [None]
